FAERS Safety Report 21587035 (Version 1)
Quarter: 2022Q4

REPORT INFORMATION
  Report Type: Spontaneous
  Country: US (occurrence: US)
  Receive Date: 20221113
  Receipt Date: 20221113
  Transmission Date: 20230113
  Serious: Yes (Hospitalization)
  Sender: FDA-Public Use
  Company Number: US-BEH-2022151790

PATIENT
  Sex: Female
  Weight: 97.506 kg

DRUGS (1)
  1. HIZENTRA [Suspect]
     Active Substance: HUMAN IMMUNOGLOBULIN G
     Indication: Immunodeficiency common variable
     Dosage: 16 GRAM, QW
     Route: 058
     Dates: start: 201612

REACTIONS (4)
  - Lymphadenopathy [Unknown]
  - Diarrhoea [Unknown]
  - Weight decreased [Unknown]
  - Gastrointestinal disorder [Unknown]
